FAERS Safety Report 11788320 (Version 1)
Quarter: 2015Q4

REPORT INFORMATION
  Report Type: Spontaneous
  Country: GB (occurrence: GB)
  Receive Date: 20151201
  Receipt Date: 20151201
  Transmission Date: 20160305
  Serious: Yes (Hospitalization, Other)
  Sender: FDA-Public Use
  Company Number: GB-AMGEN-GBRSP2015126578

PATIENT
  Age: 58 Year
  Sex: Female

DRUGS (6)
  1. OXALIPLATIN. [Concomitant]
     Active Substance: OXALIPLATIN
     Dosage: UNK
  2. NEULASTA [Suspect]
     Active Substance: PEGFILGRASTIM
     Indication: PRODUCT USED FOR UNKNOWN INDICATION
     Dosage: UNK
     Route: 065
  3. AVASTIN [Concomitant]
     Active Substance: BEVACIZUMAB
     Dosage: UNK
  4. NITROFURANTOIN. [Concomitant]
     Active Substance: NITROFURANTOIN
     Dosage: UNK
  5. 5-FU                               /00098801/ [Concomitant]
     Active Substance: FLUOROURACIL
     Dosage: UNK
  6. FOLINIC ACID [Concomitant]
     Active Substance: LEUCOVORIN
     Dosage: UNK

REACTIONS (6)
  - Pyrexia [Unknown]
  - Fatigue [Unknown]
  - Urinary tract infection [Unknown]
  - Nausea [Unknown]
  - Urostomy [Unknown]
  - Vomiting [Not Recovered/Not Resolved]
